FAERS Safety Report 4713765-6 (Version None)
Quarter: 2005Q3

REPORT INFORMATION
  Report Type: 
  Country: None (occurrence: None)
  Receive Date: 20050713
  Receipt Date: 20050218
  Transmission Date: 20060218
  Serious: Yes (Hospitalization)
  Sender: FDA-Public Use
  Company Number: US-MERCK-0502USA02632

PATIENT
  Age: 65 Year
  Sex: Female
  Weight: 80 kg

DRUGS (10)
  1. ACTOS [Concomitant]
     Route: 065
  2. METFORMIN [Concomitant]
     Route: 065
  3. NAPROXEN [Concomitant]
     Indication: ARTHRITIS
     Route: 065
     Dates: start: 20001201
  4. VIOXX [Suspect]
     Indication: ARTHRITIS
     Route: 048
     Dates: start: 20010601, end: 20040901
  5. VIOXX [Suspect]
     Indication: OSTEOARTHRITIS
     Route: 048
     Dates: start: 20010601, end: 20040901
  6. SPIRONOLACTONE [Concomitant]
     Route: 065
     Dates: start: 19990301, end: 20040101
  7. NORVASC [Concomitant]
     Route: 065
     Dates: start: 19990201, end: 20000701
  8. ASPIRIN [Concomitant]
     Indication: PROPHYLAXIS
     Route: 065
     Dates: start: 20030101
  9. HYDROCHLOROTHIAZIDE [Concomitant]
     Route: 065
     Dates: start: 19990301
  10. XENICAL [Concomitant]
     Route: 065
     Dates: start: 19981201

REACTIONS (21)
  - ANGINA UNSTABLE [None]
  - AORTIC ATHEROSCLEROSIS [None]
  - AORTIC VALVE STENOSIS [None]
  - BUNDLE BRANCH BLOCK RIGHT [None]
  - CARDIAC DISORDER [None]
  - CAROTID ARTERY STENOSIS [None]
  - CORONARY ARTERY DISEASE [None]
  - DILATATION ATRIAL [None]
  - ELECTROCARDIOGRAM Q WAVES [None]
  - ELECTROCARDIOGRAM ST-T CHANGE [None]
  - EMOTIONAL DISTRESS [None]
  - FATIGUE [None]
  - HEADACHE [None]
  - LIVER FUNCTION TEST ABNORMAL [None]
  - MYOCARDIAL INFARCTION [None]
  - OEDEMA PERIPHERAL [None]
  - PAIN IN EXTREMITY [None]
  - PROTHROMBIN TIME PROLONGED [None]
  - ROTATOR CUFF SYNDROME [None]
  - THROAT IRRITATION [None]
  - WEIGHT INCREASED [None]
